FAERS Safety Report 24558265 (Version 4)
Quarter: 2025Q1

REPORT INFORMATION
  Report Type: Spontaneous
  Country: JP (occurrence: JP)
  Receive Date: 20241029
  Receipt Date: 20250108
  Transmission Date: 20250409
  Serious: Yes (Other)
  Sender: TAKEDA
  Company Number: JP-TAKEDA-2024TJP015514

PATIENT
  Age: 92 Year
  Sex: Female
  Weight: 36.2 kg

DRUGS (7)
  1. ENTYVIO [Suspect]
     Active Substance: VEDOLIZUMAB
     Indication: Colitis ulcerative
     Dosage: 300 MILLIGRAM, Q2WEEKS
     Dates: start: 20240930
  2. IMURAN [Suspect]
     Active Substance: AZATHIOPRINE
     Indication: Colitis ulcerative
     Dosage: 100 MILLIGRAM, QD
  3. PREDONINE [Suspect]
     Active Substance: PREDNISOLONE
     Indication: Colitis ulcerative
     Dosage: 30 MILLIGRAM, QD
     Dates: start: 20240918
  4. PREDONINE [Suspect]
     Active Substance: PREDNISOLONE
  5. PREDONINE [Suspect]
     Active Substance: PREDNISOLONE
  6. PREDONINE [Suspect]
     Active Substance: PREDNISOLONE
  7. PREDONINE [Suspect]
     Active Substance: PREDNISOLONE

REACTIONS (1)
  - Cytomegalovirus enterocolitis [Recovering/Resolving]

NARRATIVE: CASE EVENT DATE: 20241009
